FAERS Safety Report 14708381 (Version 1)
Quarter: 2018Q2

REPORT INFORMATION
  Report Type: Spontaneous
  Country: BE (occurrence: BE)
  Receive Date: 20180403
  Receipt Date: 20180403
  Transmission Date: 20180711
  Serious: Yes (Hospitalization, Other)
  Sender: FDA-Public Use
  Company Number: BE-AUROBINDO-AUR-APL-2017-42366

PATIENT
  Age: 43 Year
  Sex: Male

DRUGS (62)
  1. DOXORUBICIN [Suspect]
     Active Substance: DOXORUBICIN
     Indication: DIFFUSE LARGE B-CELL LYMPHOMA
     Route: 065
  2. RITUXIMAB. [Suspect]
     Active Substance: RITUXIMAB
     Indication: B-CELL LYMPHOMA
     Dosage: R-CHOP ()
     Route: 065
  3. RITUXIMAB. [Suspect]
     Active Substance: RITUXIMAB
     Indication: DIFFUSE LARGE B-CELL LYMPHOMA STAGE III
     Dosage: R-CHOP ()
     Route: 065
  4. RITUXIMAB. [Suspect]
     Active Substance: RITUXIMAB
     Dosage: ()
  5. CYCLOPHOSPHAMIDE. [Suspect]
     Active Substance: CYCLOPHOSPHAMIDE
     Indication: DIFFUSE LARGE B-CELL LYMPHOMA REFRACTORY
     Dosage: 8 CYCLES (R-CHOP) ()
     Route: 065
  6. PREDNISONE. [Suspect]
     Active Substance: PREDNISONE
     Indication: DIFFUSE LARGE B-CELL LYMPHOMA RECURRENT
     Dosage: ()
     Route: 065
  7. LINEZOLID. [Concomitant]
     Active Substance: LINEZOLID
     Indication: STAPHYLOCOCCAL INFECTION
     Dosage: ()
     Route: 065
  8. ETOPOSIDE. [Suspect]
     Active Substance: ETOPOSIDE
     Indication: MALIGNANT NEOPLASM PROGRESSION
  9. BLINATUMOMAB [Suspect]
     Active Substance: BLINATUMOMAB
     Dosage: ()
     Route: 042
     Dates: start: 20161229, end: 20170104
  10. RITUXIMAB. [Suspect]
     Active Substance: RITUXIMAB
     Dosage: RITUXIMAB-BENDAMUSTIN ()
     Route: 065
     Dates: start: 201205
  11. RITUXIMAB. [Suspect]
     Active Substance: RITUXIMAB
     Indication: DIFFUSE LARGE B-CELL LYMPHOMA
     Dosage: R-CHOP ()
     Route: 065
     Dates: start: 2013
  12. RITUXIMAB. [Suspect]
     Active Substance: RITUXIMAB
     Dosage: R-CHOP ()
     Route: 065
  13. RITUXIMAB. [Suspect]
     Active Substance: RITUXIMAB
     Dosage: ()
  14. RITUXIMAB. [Suspect]
     Active Substance: RITUXIMAB
     Dosage: R-CHOP REGIMEN (SECOND TIME RELAPSE) ()
     Route: 065
  15. CYCLOPHOSPHAMIDE. [Suspect]
     Active Substance: CYCLOPHOSPHAMIDE
     Indication: DIFFUSE LARGE B-CELL LYMPHOMA RECURRENT
     Dosage: R-CHOP (AT SECOND RELAPSE) ()
     Route: 065
  16. PREDNISONE. [Suspect]
     Active Substance: PREDNISONE
     Indication: B-CELL LYMPHOMA
     Route: 065
  17. BENDAMUSTINE [Suspect]
     Active Substance: BENDAMUSTINE
     Indication: B-CELL LYMPHOMA
     Dosage: POWDER FOR INJECTION
     Route: 042
  18. CYTARABINE. [Suspect]
     Active Substance: CYTARABINE
     Indication: DIFFUSE LARGE B-CELL LYMPHOMA
     Dosage: BEAM-REGIMEN ()
     Route: 065
     Dates: start: 201412
  19. CYTARABINE. [Suspect]
     Active Substance: CYTARABINE
     Indication: STEM CELL TRANSPLANT
     Dosage: ()
     Route: 065
     Dates: start: 2014
  20. ETOPOSIDE. [Suspect]
     Active Substance: ETOPOSIDE
     Indication: DIFFUSE LARGE B-CELL LYMPHOMA
     Dosage: ()
     Route: 065
     Dates: start: 2014
  21. IFOSFAMIDE. [Suspect]
     Active Substance: IFOSFAMIDE
     Indication: MALIGNANT NEOPLASM PROGRESSION
     Dosage: ()
  22. OXALIPLATIN. [Suspect]
     Active Substance: OXALIPLATIN
  23. OXALIPLATIN. [Suspect]
     Active Substance: OXALIPLATIN
     Dosage: ()
     Route: 065
  24. COPANLISIB. [Concomitant]
     Active Substance: COPANLISIB
     Indication: DIFFUSE LARGE B-CELL LYMPHOMA
     Dosage: UNK
     Route: 065
  25. BLINATUMOMAB [Suspect]
     Active Substance: BLINATUMOMAB
     Indication: B-CELL LYMPHOMA
     Dosage: 28 MICROGRAM, DAILY
     Dates: start: 20161129
  26. VINCRISTINE [Suspect]
     Active Substance: VINCRISTINE
     Indication: B-CELL LYMPHOMA
     Dosage: ()
     Route: 065
  27. BENDAMUSTINE [Suspect]
     Active Substance: BENDAMUSTINE
     Indication: DIFFUSE LARGE B-CELL LYMPHOMA REFRACTORY
     Dosage: ()
     Route: 065
  28. MELPHALAN. [Suspect]
     Active Substance: MELPHALAN
     Indication: STEM CELL TRANSPLANT
     Dosage: ()
     Route: 065
     Dates: start: 201401
  29. CARBOPLATIN. [Suspect]
     Active Substance: CARBOPLATIN
     Indication: DIFFUSE LARGE B-CELL LYMPHOMA REFRACTORY
     Dosage: ()
  30. GEMCITABINE [Suspect]
     Active Substance: GEMCITABINE\GEMCITABINE HYDROCHLORIDE
     Indication: DIFFUSE LARGE B-CELL LYMPHOMA
     Dosage: UNK
     Route: 065
  31. VANCOMYCIN [Suspect]
     Active Substance: VANCOMYCIN
     Dosage: ()
     Route: 065
  32. DOXORUBICIN [Suspect]
     Active Substance: DOXORUBICIN
     Indication: B-CELL LYMPHOMA
     Dosage: 8 CYCLES (R-CHOP  REGIMEN) ()
     Route: 065
     Dates: start: 201205
  33. DOXORUBICIN [Suspect]
     Active Substance: DOXORUBICIN
     Indication: DIFFUSE LARGE B-CELL LYMPHOMA STAGE III
     Dosage: ()
  34. BLINATUMOMAB [Suspect]
     Active Substance: BLINATUMOMAB
     Indication: DIFFUSE LARGE B-CELL LYMPHOMA REFRACTORY
     Dosage: 9 ?G, UNK
     Route: 065
     Dates: start: 20161129
  35. BLINATUMOMAB [Suspect]
     Active Substance: BLINATUMOMAB
     Dosage: 112 UG, DAILY (SECOND ESCALATION TO THE FINAL DOSE OF 112 UG PER DAY ANOTHER WEEK THEREAFTER)
     Route: 042
     Dates: start: 20170104, end: 20170308
  36. RITUXIMAB. [Suspect]
     Active Substance: RITUXIMAB
     Dosage: R-CHOP ()
     Route: 065
  37. RITUXIMAB. [Suspect]
     Active Substance: RITUXIMAB
     Dosage: ()
  38. PREDNISONE. [Suspect]
     Active Substance: PREDNISONE
     Indication: DIFFUSE LARGE B-CELL LYMPHOMA
     Dosage: ()
     Route: 065
     Dates: start: 201205
  39. CARBOPLATIN. [Suspect]
     Active Substance: CARBOPLATIN
     Indication: DIFFUSE LARGE B-CELL LYMPHOMA
     Dosage: ICE REGIMEN ()
     Route: 065
     Dates: start: 2014
  40. CARMUSTINE [Suspect]
     Active Substance: CARMUSTINE
     Indication: DIFFUSE LARGE B-CELL LYMPHOMA
     Dosage: BEAM-REGIMEN ()
     Route: 065
     Dates: start: 201412
  41. CARMUSTINE [Suspect]
     Active Substance: CARMUSTINE
     Indication: STEM CELL TRANSPLANT
     Dosage: ()
     Route: 065
     Dates: start: 2014
  42. VANCOMYCIN [Suspect]
     Active Substance: VANCOMYCIN
     Indication: DEVICE RELATED INFECTION
     Dosage: ()
     Route: 065
  43. DOXORUBICIN [Suspect]
     Active Substance: DOXORUBICIN
     Indication: DIFFUSE LARGE B-CELL LYMPHOMA RECURRENT
     Dosage: ()
     Route: 065
  44. RITUXIMAB. [Suspect]
     Active Substance: RITUXIMAB
     Indication: DIFFUSE LARGE B-CELL LYMPHOMA REFRACTORY
     Dosage: R-CHOP ()
     Route: 065
     Dates: start: 2013
  45. PREDNISONE. [Suspect]
     Active Substance: PREDNISONE
     Dosage: ()
  46. BENDAMUSTINE [Suspect]
     Active Substance: BENDAMUSTINE
     Indication: DIFFUSE LARGE B-CELL LYMPHOMA
  47. DEXAMETHASONE. [Concomitant]
     Active Substance: DEXAMETHASONE
     Indication: DIFFUSE LARGE B-CELL LYMPHOMA
     Dosage: 20 MG
     Route: 065
  48. GEMCITABINE [Suspect]
     Active Substance: GEMCITABINE\GEMCITABINE HYDROCHLORIDE
     Indication: B-CELL LYMPHOMA
     Dosage: ()
     Route: 065
  49. DOXORUBICIN [Suspect]
     Active Substance: DOXORUBICIN
     Dosage: R-CHOP REGIMEN (SECOND TIME RELAPSE) ()
     Route: 065
  50. CYCLOPHOSPHAMIDE. [Suspect]
     Active Substance: CYCLOPHOSPHAMIDE
     Indication: DIFFUSE LARGE B-CELL LYMPHOMA
     Dosage: ()
     Route: 065
     Dates: start: 201205
  51. VINCRISTINE [Suspect]
     Active Substance: VINCRISTINE
     Indication: DIFFUSE LARGE B-CELL LYMPHOMA
     Dosage: ()
     Route: 065
     Dates: start: 201205
  52. ETOPOSIDE. [Suspect]
     Active Substance: ETOPOSIDE
     Indication: DIFFUSE LARGE B-CELL LYMPHOMA REFRACTORY
     Dosage: ICE-REGIMEN ()
     Route: 065
     Dates: start: 201412
  53. IFOSFAMIDE. [Suspect]
     Active Substance: IFOSFAMIDE
     Indication: DIFFUSE LARGE B-CELL LYMPHOMA
     Dosage: ()
     Route: 065
     Dates: start: 2014
  54. GEMCITABINE [Suspect]
     Active Substance: GEMCITABINE\GEMCITABINE HYDROCHLORIDE
     Dosage: ()
     Route: 065
  55. BLINATUMOMAB [Suspect]
     Active Substance: BLINATUMOMAB
     Indication: DIFFUSE LARGE B-CELL LYMPHOMA
     Dosage: 112 MICROGRAM DAILY;
     Route: 050
     Dates: start: 20161129
  56. BLINATUMOMAB [Suspect]
     Active Substance: BLINATUMOMAB
     Dosage: TREATMENT CONTINUED FOR A TOTAL OF 56 DAYS
     Route: 042
     Dates: start: 20170105, end: 20170111
  57. CYCLOPHOSPHAMIDE. [Suspect]
     Active Substance: CYCLOPHOSPHAMIDE
     Indication: B-CELL LYMPHOMA
     Dosage: ()
     Route: 065
  58. MELPHALAN. [Suspect]
     Active Substance: MELPHALAN
     Indication: DIFFUSE LARGE B-CELL LYMPHOMA
     Dosage: BEAM-REGIMEN ()
     Route: 065
     Dates: start: 201412
  59. ETOPOSIDE. [Suspect]
     Active Substance: ETOPOSIDE
     Indication: STEM CELL TRANSPLANT
     Dosage: ()
  60. OXALIPLATIN. [Suspect]
     Active Substance: OXALIPLATIN
     Indication: DIFFUSE LARGE B-CELL LYMPHOMA
     Dosage: ()
     Route: 065
  61. RITUXIMAB. [Suspect]
     Active Substance: RITUXIMAB
     Indication: DIFFUSE LARGE B-CELL LYMPHOMA RECURRENT
     Dosage: R-CHOP ()
     Route: 065
  62. PREDNISONE. [Suspect]
     Active Substance: PREDNISONE
     Indication: DIFFUSE LARGE B-CELL LYMPHOMA REFRACTORY
     Dosage: R-CHOP REGIMEN (AT SECOND RELAPSE) ()
     Route: 065

REACTIONS (22)
  - Neutropenic sepsis [Recovered/Resolved]
  - Metastases to spleen [Recovered/Resolved]
  - Metastases to bone marrow [Recovered/Resolved]
  - Toxicity to various agents [Recovered/Resolved]
  - Metastases to muscle [Recovered/Resolved]
  - Cytokine release syndrome [Recovered/Resolved]
  - Metastases to liver [Recovered/Resolved]
  - Cytopenia [Recovered/Resolved]
  - Pyrexia [Unknown]
  - Metastases to lung [Recovered/Resolved]
  - Renal impairment [Unknown]
  - Diffuse large B-cell lymphoma [Recovered/Resolved]
  - Metastases to retroperitoneum [Recovered/Resolved]
  - Off label use [Unknown]
  - Staphylococcal infection [Unknown]
  - Glomerular filtration rate decreased [Unknown]
  - End stage renal disease [Recovered/Resolved]
  - Device related infection [Unknown]
  - Drug ineffective [Recovered/Resolved]
  - Drug ineffective for unapproved indication [Unknown]
  - Nervous system disorder [Recovered/Resolved]
  - Malignant neoplasm progression [Recovered/Resolved]
